FAERS Safety Report 21628253 (Version 1)
Quarter: 2022Q4

REPORT INFORMATION
  Report Type: Spontaneous
  Country: BE (occurrence: BE)
  Receive Date: 20221122
  Receipt Date: 20221122
  Transmission Date: 20230113
  Serious: Yes (Hospitalization)
  Sender: FDA-Public Use
  Company Number: None

PATIENT

DRUGS (1)
  1. SOTROVIMAB [Suspect]
     Active Substance: SOTROVIMAB
     Indication: COVID-19
     Dosage: UNK, SINGLE ADMINISTRATION, NOT INTERRUPTED.
     Route: 042
     Dates: start: 20220207

REACTIONS (4)
  - Presyncope [Unknown]
  - Oxygen saturation decreased [Unknown]
  - Rash [Unknown]
  - Hypotension [Unknown]

NARRATIVE: CASE EVENT DATE: 20220207
